FAERS Safety Report 8432634-1 (Version None)
Quarter: 2012Q2

REPORT INFORMATION
  Report Type: 
  Country: None (occurrence: None)
  Receive Date: 20120613
  Receipt Date: 20120607
  Transmission Date: 20120825
  Serious: Yes (Disabling)
  Sender: FDA-Public Use
  Company Number: US-CELGENEUS-163-21880-12041710

PATIENT
  Sex: Female
  Weight: 72.186 kg

DRUGS (5)
  1. ACYCLOVIR [Concomitant]
     Dosage: 800 MILLIGRAM
     Route: 048
  2. ZOMETA [Concomitant]
     Dosage: 81 MILLIGRAM
     Route: 048
  3. REVLIMID [Suspect]
     Indication: MULTIPLE MYELOMA
     Dosage: 25 MILLIGRAM
     Route: 048
     Dates: start: 20100701
  4. REVLIMID [Suspect]
     Dosage: 10 MILLIGRAM
     Route: 048
     Dates: start: 20111220, end: 20120414
  5. ASPIRIN [Concomitant]
     Dosage: 81 MILLIGRAM
     Route: 048

REACTIONS (8)
  - ANXIETY [None]
  - FATIGUE [None]
  - IRRITABILITY [None]
  - ANGER [None]
  - INSOMNIA [None]
  - AFFECT LABILITY [None]
  - FRUSTRATION [None]
  - DEPRESSION [None]
